FAERS Safety Report 17219739 (Version 3)
Quarter: 2020Q1

REPORT INFORMATION
  Report Type: Spontaneous
  Country: US (occurrence: US)
  Receive Date: 20191231
  Receipt Date: 20200123
  Transmission Date: 20200409
  Serious: Yes (Hospitalization, Other)
  Sender: FDA-Public Use
  Company Number: US-CELGENEUS-USA-20191210652

PATIENT
  Age: 72 Year
  Sex: Male

DRUGS (4)
  1. DXM [Concomitant]
     Indication: PLASMA CELL MYELOMA RECURRENT
     Dosage: 20 MILLIGRAM
     Route: 048
     Dates: start: 20191202
  2. POMALYST [Suspect]
     Active Substance: POMALIDOMIDE
     Indication: PLASMA CELL MYELOMA
     Dosage: 4 MILLIGRAM
     Route: 048
     Dates: start: 201911, end: 201912
  3. POMALYST [Suspect]
     Active Substance: POMALIDOMIDE
     Dosage: DOSE REDUCED
     Route: 048
     Dates: start: 201912
  4. IXAZOMIB [Concomitant]
     Active Substance: IXAZOMIB
     Indication: PLASMA CELL MYELOMA RECURRENT
     Dosage: 3 MILLIGRAM
     Route: 048
     Dates: start: 20191202

REACTIONS (2)
  - Febrile neutropenia [Recovered/Resolved]
  - Pneumonia [Recovered/Resolved]

NARRATIVE: CASE EVENT DATE: 201912
